FAERS Safety Report 6194665-4 (Version None)
Quarter: 2009Q2

REPORT INFORMATION
  Report Type: 
  Country: None (occurrence: None)
  Receive Date: 20090519
  Receipt Date: 20090513
  Transmission Date: 20091009
  Serious: Yes (Hospitalization, Other)
  Sender: FDA-Public Use
  Company Number: AT-BAYER-200920970GPV

PATIENT
  Age: 57 Year
  Sex: Male

DRUGS (1)
  1. CAMPATH [Suspect]
     Indication: IMMUNOSUPPRESSION
     Dosage: TOTAL DAILY DOSE: 30 MG
     Route: 065

REACTIONS (1)
  - RENAL FAILURE ACUTE [None]
